FAERS Safety Report 9698469 (Version 2)
Quarter: 2013Q4

REPORT INFORMATION
  Report Type: Spontaneous
  Country: US (occurrence: US)
  Receive Date: 20131120
  Receipt Date: 20131120
  Transmission Date: 20140711
  Serious: No
  Sender: FDA-Public Use
  Company Number: US-MALLINCKRODT-T201304452

PATIENT
  Age: 31 Year
  Sex: Male

DRUGS (4)
  1. GABLOFEN [Suspect]
     Indication: MUSCLE SPASTICITY
     Dosage: 652 MCG PER DAY
     Route: 037
  2. GABLOFEN [Suspect]
     Dosage: 549 MCG PER DAY WITH A BOLUS Q4H
     Route: 037
  3. BACLOFEN [Suspect]
     Indication: HEADACHE
     Dosage: 20 MG, TID
     Route: 048
     Dates: start: 20130617
  4. BACLOFEN [Suspect]
     Dosage: 6 PILLS A DAY
     Route: 048
     Dates: start: 20130711

REACTIONS (11)
  - Headache [Recovering/Resolving]
  - Aphagia [Recovering/Resolving]
  - Weight decreased [Recovering/Resolving]
  - Muscle spasticity [Recovering/Resolving]
  - Malaise [Recovering/Resolving]
  - Pyrexia [Recovering/Resolving]
  - Vomiting [Recovering/Resolving]
  - Drug effect increased [Recovering/Resolving]
  - Device failure [Recovered/Resolved]
  - Drug effect decreased [Recovering/Resolving]
  - Pain [Recovering/Resolving]
